FAERS Safety Report 10428573 (Version 1)
Quarter: 2014Q3

REPORT INFORMATION
  Report Type: Spontaneous
  Country: FR (occurrence: None)
  Receive Date: 20140829
  Receipt Date: 20140829
  Transmission Date: 20150326
  Serious: Yes (Hospitalization)
  Sender: FDA-Public Use
  Company Number: IMP_07862_2014

PATIENT
  Age: 63 Year
  Sex: Female

DRUGS (4)
  1. ESCITALOPRAM [Concomitant]
     Active Substance: ESCITALOPRAM OXALATE
  2. OXAZEPAM. [Concomitant]
     Active Substance: OXAZEPAM
  3. BACLOFEN (BACLOFEN) [Suspect]
     Active Substance: BACLOFEN
     Indication: ALCOHOLISM
  4. ZOPICLONE [Concomitant]
     Active Substance: ZOPICLONE

REACTIONS (13)
  - Dyspepsia [None]
  - Somnolence [None]
  - Headache [None]
  - Insomnia [None]
  - Sudden onset of sleep [None]
  - Hallucination [None]
  - Pain [None]
  - Vomiting [None]
  - Blood pressure increased [None]
  - Accommodation disorder [None]
  - Anxiety [None]
  - Confusional state [None]
  - Hypertension [None]

NARRATIVE: CASE EVENT DATE: 2013
